FAERS Safety Report 9575498 (Version 1)
Quarter: 2013Q4

REPORT INFORMATION
  Report Type: Spontaneous
  Country: US (occurrence: US)
  Receive Date: 20131001
  Receipt Date: 20131001
  Transmission Date: 20140711
  Serious: No
  Sender: FDA-Public Use
  Company Number: US-AMGEN-USASP2012083500

PATIENT
  Age: 42 Year
  Sex: Male
  Weight: 108.84 kg

DRUGS (3)
  1. ENBREL [Suspect]
     Indication: PSORIASIS
     Dosage: 50 MG, 2 TIMES/WK
     Route: 058
  2. TRAMADOL HCL [Concomitant]
     Dosage: 50 MG, UNK
     Route: 048
  3. HYDROCODONE/HOMATROPINE [Concomitant]
     Dosage: UNK
     Route: 048

REACTIONS (1)
  - Influenza like illness [Unknown]
